FAERS Safety Report 6097976-6 (Version None)
Quarter: 2009Q1

REPORT INFORMATION
  Report Type: 
  Country: None (occurrence: None)
  Receive Date: 20090227
  Receipt Date: 20090225
  Transmission Date: 20090719
  Serious: Yes (Death)
  Sender: FDA-Public Use
  Company Number: GR-BRISTOL-MYERS SQUIBB COMPANY-14522809

PATIENT
  Age: 46 Year
  Sex: Male

DRUGS (3)
  1. CETUXIMAB [Suspect]
     Indication: HEAD AND NECK CANCER
     Route: 042
  2. CISPLATIN [Suspect]
     Indication: HEAD AND NECK CANCER
     Route: 042
  3. RADIATION THERAPY [Suspect]
     Indication: HEAD AND NECK CANCER
     Dosage: 1 DF = 75GY TO THE TUMOR AREA + 45GY TO THE REST OF THE NECK.

REACTIONS (1)
  - LARYNGEAL HAEMORRHAGE [None]
